FAERS Safety Report 10794202 (Version 2)
Quarter: 2015Q1

REPORT INFORMATION
  Report Type: Spontaneous
  Country: JP (occurrence: JP)
  Receive Date: 20150213
  Receipt Date: 20150327
  Transmission Date: 20150721
  Serious: Yes (Life-Threatening, Hospitalization, Other)
  Sender: FDA-Public Use
  Company Number: JP-GLAXOSMITHKLINE-JP2015JPN016392

PATIENT
  Age: 49 Year
  Sex: Male
  Weight: 79 kg

DRUGS (11)
  1. LAMICTAL [Suspect]
     Active Substance: LAMOTRIGINE
     Dosage: 25 MG, BID
     Route: 048
     Dates: start: 20141219, end: 20150122
  2. SENIRAN [Concomitant]
     Active Substance: BROMAZEPAM
     Dosage: 2 MG, BID
     Dates: start: 201409, end: 20150122
  3. CALONAL [Concomitant]
     Active Substance: ACETAMINOPHEN
  4. TRANEXAMIC ACID. [Concomitant]
     Active Substance: TRANEXAMIC ACID
  5. LAMICTAL [Suspect]
     Active Substance: LAMOTRIGINE
     Indication: BIPOLAR DISORDER
     Dosage: 25 MG, QD
     Route: 048
     Dates: start: 20141205, end: 20141218
  6. TRIAZOLAM. [Concomitant]
     Active Substance: TRIAZOLAM
     Dosage: 0.5 MG, QD
     Dates: start: 201410, end: 20150122
  7. OLOPATADINE HYDROCHLORIDE. [Concomitant]
     Active Substance: OLOPATADINE HYDROCHLORIDE
  8. METGLUCO [Concomitant]
     Active Substance: METFORMIN HYDROCHLORIDE
     Dosage: 250 MG, BID
     Dates: start: 201412, end: 20150122
  9. LOXONIN [Suspect]
     Active Substance: LOXOPROFEN SODIUM
     Indication: RHINITIS
     Dosage: 60 MG, QD
     Route: 048
     Dates: start: 20150101, end: 20150103
  10. GLACTIV [Suspect]
     Active Substance: SITAGLIPTIN
     Dosage: 50 MG, QD
     Route: 048
     Dates: start: 201412, end: 20150122
  11. CONTOMIN [Concomitant]
     Active Substance: CHLORPROMAZINE
     Dosage: 12.5 MG, BID
     Dates: start: 201409, end: 20150122

REACTIONS (17)
  - Epidermal necrosis [Unknown]
  - Lip erosion [Unknown]
  - Skin degenerative disorder [Unknown]
  - Erythema of eyelid [Unknown]
  - Skin erosion [Unknown]
  - Stevens-Johnson syndrome [Recovering/Resolving]
  - Staphylococcal sepsis [Recovering/Resolving]
  - Ocular hyperaemia [Unknown]
  - Dermatitis exfoliative [Unknown]
  - Drug reaction with eosinophilia and systemic symptoms [Recovering/Resolving]
  - Scab [Unknown]
  - Lymphadenopathy [Unknown]
  - Mucous membrane disorder [Unknown]
  - Eye discharge [Unknown]
  - Oral mucosa erosion [Unknown]
  - Pyrexia [Unknown]
  - Lymphocytic infiltration [Unknown]

NARRATIVE: CASE EVENT DATE: 20150110
